FAERS Safety Report 22021821 (Version 1)
Quarter: 2023Q1

REPORT INFORMATION
  Report Type: Spontaneous
  Country: HU (occurrence: HU)
  Receive Date: 20230222
  Receipt Date: 20230222
  Transmission Date: 20230418
  Serious: Yes (Other)
  Sender: FDA-Public Use
  Company Number: HU-002147023-NVSC2023HU021706

PATIENT
  Age: 72 Year
  Sex: Male

DRUGS (8)
  1. FLUOROURACIL [Suspect]
     Active Substance: FLUOROURACIL
     Indication: Intraductal proliferative breast lesion
     Dosage: UNK (3 SERIES OF ADJUVANT CHEMOTHERAPY ACCORDING)
     Route: 065
     Dates: start: 20110505, end: 20110616
  2. FLUOROURACIL [Suspect]
     Active Substance: FLUOROURACIL
     Dosage: UNK (3 SERIES OF ADJUVANT CHEMOTHERAPY ACCORDING)
     Route: 065
     Dates: start: 20101214, end: 20110127
  3. EPIRUBICIN HYDROCHLORIDE [Suspect]
     Active Substance: EPIRUBICIN HYDROCHLORIDE
     Indication: Intraductal proliferative breast lesion
     Dosage: UNK (3 SERIES OF ADJUVANT CHEMOTHERAPY ACCORDING)
     Route: 065
     Dates: start: 20110505, end: 20110616
  4. EPIRUBICIN HYDROCHLORIDE [Suspect]
     Active Substance: EPIRUBICIN HYDROCHLORIDE
     Dosage: UNK (3 SERIES OF ADJUVANT CHEMOTHERAPY ACCORDING)
     Route: 065
     Dates: start: 20101214, end: 20110127
  5. TAMOXIFEN CITRATE [Suspect]
     Active Substance: TAMOXIFEN CITRATE
     Indication: Intraductal proliferative breast lesion
     Dosage: UNK (5 YEARS OF ADJUVANT)
     Route: 065
     Dates: start: 201107
  6. CYCLOPHOSPHAMIDE [Suspect]
     Active Substance: CYCLOPHOSPHAMIDE
     Indication: Intraductal proliferative breast lesion
     Dosage: UNK (3 SERIES OF ADJUVANT CHEMOTHERAPY ACCORDING)
     Route: 065
     Dates: start: 20101214, end: 20110127
  7. CYCLOPHOSPHAMIDE [Suspect]
     Active Substance: CYCLOPHOSPHAMIDE
     Dosage: UNK (3 SERIES OF ADJUVANT CHEMOTHERAPY ACCORDING)
     Route: 065
     Dates: start: 20110505, end: 20110616
  8. TRASTUZUMAB [Suspect]
     Active Substance: TRASTUZUMAB
     Indication: Intraductal proliferative breast lesion
     Dosage: UNK (17 SERIES OF ADJUVANT)
     Route: 065
     Dates: start: 20110721, end: 20120712

REACTIONS (2)
  - Metastases to lung [Not Recovered/Not Resolved]
  - Breast cancer metastatic [Not Recovered/Not Resolved]

NARRATIVE: CASE EVENT DATE: 20200305
